FAERS Safety Report 14608663 (Version 1)
Quarter: 2018Q1

REPORT INFORMATION
  Report Type: Spontaneous
  Country: US (occurrence: US)
  Receive Date: 20180307
  Receipt Date: 20180307
  Transmission Date: 20180509
  Serious: No
  Sender: FDA-Public Use
  Company Number: US-TEVA-2018-US-864832

PATIENT
  Sex: Female

DRUGS (1)
  1. AZITHROMYCIN ANHYDROUS. [Suspect]
     Active Substance: AZITHROMYCIN ANHYDROUS
     Indication: TOOTH INFECTION
     Route: 065
     Dates: start: 20180219, end: 20180220

REACTIONS (4)
  - Chills [Unknown]
  - Muscular weakness [Unknown]
  - Cold sweat [Unknown]
  - Malaise [Unknown]

NARRATIVE: CASE EVENT DATE: 20180220
